FAERS Safety Report 4891706-9 (Version None)
Quarter: 2005Q4

REPORT INFORMATION
  Report Type: 
  Country: None (occurrence: None)
  Receive Date: 20051220
  Receipt Date: 20051021
  Transmission Date: 20060501
  Serious: Yes (Other)
  Sender: FDA-Public Use
  Company Number: 422283

PATIENT
  Sex: Female

DRUGS (7)
  1. BONIVA [Suspect]
     Dosage: 1 PER MONTH ORAL
     Route: 048
     Dates: start: 20050815, end: 20051001
  2. NAPROSYN [Concomitant]
  3. FLUOXETINE [Concomitant]
  4. ZYRTEC [Concomitant]
  5. ALBUTEROL [Concomitant]
  6. SINGULAIR [Concomitant]
  7. ADVIL [Concomitant]

REACTIONS (1)
  - PAIN IN EXTREMITY [None]
